FAERS Safety Report 17146788 (Version 1)
Quarter: 2019Q4

REPORT INFORMATION
  Report Type: Spontaneous
  Country: IT (occurrence: IT)
  Receive Date: 20191212
  Receipt Date: 20191212
  Transmission Date: 20200122
  Serious: Yes (Death)
  Sender: FDA-Public Use
  Company Number: NVSC2019IT028952

PATIENT
  Age: 60 Year
  Sex: Male

DRUGS (7)
  1. RITUXIMAB. [Suspect]
     Active Substance: RITUXIMAB
     Indication: MYELOFIBROSIS
     Dosage: UNK UNK, CYCLIC (8 CYCLES)
     Route: 065
  2. CYCLOPHOSPHAMIDE. [Suspect]
     Active Substance: CYCLOPHOSPHAMIDE
     Indication: MYELOFIBROSIS
     Dosage: UNK UNK, CYCLIC  (6 CYCLES)
     Route: 065
  3. CYTARABINE. [Suspect]
     Active Substance: CYTARABINE
     Indication: MYELOFIBROSIS
     Dosage: UNK (HIGH DOSE)
     Route: 065
  4. VINCRISTINE [Suspect]
     Active Substance: VINCRISTINE
     Indication: MYELOFIBROSIS
     Dosage: UNK UNK, CYCLIC (6 CYCLES)
     Route: 065
  5. DOXORUBICIN [Suspect]
     Active Substance: DOXORUBICIN
     Indication: MYELOFIBROSIS
     Dosage: UNK UNK, CYCLIC (6 CYCLES)
     Route: 065
  6. METHOTREXATE. [Suspect]
     Active Substance: METHOTREXATE
     Indication: MYELOFIBROSIS
     Dosage: UNK (HIGH DOSE)
     Route: 042
  7. PREDNISOLONE. [Suspect]
     Active Substance: PREDNISOLONE
     Indication: MYELOFIBROSIS
     Dosage: UNK UNK, CYCLIC  (6 CYCLES)
     Route: 065

REACTIONS (3)
  - Myelofibrosis [Fatal]
  - Product use in unapproved indication [Unknown]
  - Malignant neoplasm progression [Fatal]
